FAERS Safety Report 20131421 (Version 1)
Quarter: 2021Q4

REPORT INFORMATION
  Report Type: Spontaneous
  Country: US (occurrence: US)
  Receive Date: 20211130
  Receipt Date: 20211130
  Transmission Date: 20220303
  Serious: No
  Sender: FDA-Public Use
  Company Number: US-TEVA-2021-US-1980114

PATIENT
  Age: 68 Year
  Sex: Female
  Weight: 81.65 kg

DRUGS (2)
  1. QVAR REDIHALER [Suspect]
     Active Substance: BECLOMETHASONE DIPROPIONATE
     Indication: Seasonal allergy
     Dosage: 1 PUFF TWICE A DAY (MORNING AND NIGHT)
     Route: 065
  2. QVAR REDIHALER [Suspect]
     Active Substance: BECLOMETHASONE DIPROPIONATE
     Indication: Bronchiectasis

REACTIONS (5)
  - Sinus disorder [Unknown]
  - Cough [Unknown]
  - Accidental exposure to product [Unknown]
  - Device malfunction [Unknown]
  - Migraine [Unknown]

NARRATIVE: CASE EVENT DATE: 20210101
